FAERS Safety Report 4715852-5 (Version None)
Quarter: 2005Q3

REPORT INFORMATION
  Report Type: 
  Country: None (occurrence: None)
  Receive Date: 20050718
  Receipt Date: 20030227
  Transmission Date: 20060218
  Serious: Yes (Other)
  Sender: FDA-Public Use
  Company Number: JP-ROCHE-332743

PATIENT
  Age: 6 Year
  Sex: Male
  Weight: 24 kg

DRUGS (3)
  1. TAMIFLU [Suspect]
     Dosage: FORMULATION REPORTED AS DRY SYRUP.
     Route: 048
     Dates: start: 20030221, end: 20030222
  2. TAMIFLU [Suspect]
     Route: 048
     Dates: start: 20030221, end: 20030221
  3. L-KEFRAL [Concomitant]
     Route: 048
     Dates: start: 20030222, end: 20030222

REACTIONS (7)
  - EAR PAIN [None]
  - ERYTHEMA [None]
  - HEADACHE [None]
  - MYALGIA [None]
  - OEDEMA [None]
  - PRURITUS [None]
  - URTICARIA [None]
